FAERS Safety Report 13530196 (Version 1)
Quarter: 2017Q2

REPORT INFORMATION
  Report Type: Spontaneous
  Country: US (occurrence: US)
  Receive Date: 20170509
  Receipt Date: 20170509
  Transmission Date: 20170830
  Serious: Yes (Hospitalization)
  Sender: FDA-Public Use
  Company Number: None

PATIENT
  Age: 54 Year
  Sex: Female

DRUGS (8)
  1. FASLODEX [Concomitant]
     Active Substance: FULVESTRANT
  2. LISINOPRIL. [Concomitant]
     Active Substance: LISINOPRIL
  3. SERTRALINE [Concomitant]
     Active Substance: SERTRALINE HYDROCHLORIDE
  4. ZOLPIDEM [Concomitant]
     Active Substance: ZOLPIDEM\ZOLPIDEM TARTRATE
  5. ZOMETA [Concomitant]
     Active Substance: ZOLEDRONIC ACID
  6. ELIQUIS [Concomitant]
     Active Substance: APIXABAN
  7. IBRANCE [Suspect]
     Active Substance: PALBOCICLIB
     Indication: NEOPLASM MALIGNANT
     Route: 048
     Dates: start: 20160729
  8. IBUPROFEN. [Concomitant]
     Active Substance: IBUPROFEN

REACTIONS (2)
  - Therapy cessation [None]
  - Infection [None]

NARRATIVE: CASE EVENT DATE: 20170502
